FAERS Safety Report 20765851 (Version 11)
Quarter: 2025Q4

REPORT INFORMATION
  Report Type: Spontaneous
  Country: US (occurrence: US)
  Receive Date: 20220428
  Receipt Date: 20251016
  Transmission Date: 20260117
  Serious: Yes (Other)
  Sender: PFIZER
  Company Number: US-PFIZER INC-202200397531

PATIENT
  Age: 69 Year
  Sex: Female

DRUGS (2)
  1. IBRANCE [Suspect]
     Active Substance: PALBOCICLIB
     Dosage: 100 MG
     Dates: start: 20220222
  2. IBRANCE [Suspect]
     Active Substance: PALBOCICLIB
     Dosage: 100 MG, CYCLIC (DAILY FOR 3 WEEKS AND 1 WEEK OFF)
     Route: 048
     Dates: end: 202411

REACTIONS (10)
  - Metastases to spine [Unknown]
  - Malignant neoplasm progression [Unknown]
  - Swelling face [Unknown]
  - Spinal pain [Unknown]
  - Back pain [Unknown]
  - Musculoskeletal discomfort [Unknown]
  - Vision blurred [Unknown]
  - Nasopharyngitis [Unknown]
  - Fatigue [Unknown]
  - Wrong strength [Unknown]

NARRATIVE: CASE EVENT DATE: 20220101
